FAERS Safety Report 20348574 (Version 2)
Quarter: 2022Q1

REPORT INFORMATION
  Report Type: Spontaneous
  Country: US (occurrence: US)
  Receive Date: 20220119
  Receipt Date: 20220124
  Transmission Date: 20220424
  Serious: No
  Sender: FDA-Public Use
  Company Number: US-NOVARTISTESTPH-NVSC2022US010013

PATIENT
  Sex: Male

DRUGS (1)
  1. MEKINIST [Suspect]
     Active Substance: TRAMETINIB DIMETHYL SULFOXIDE
     Indication: Brain neoplasm
     Dosage: 0.5 MG, QD
     Route: 048
     Dates: start: 20211111

REACTIONS (3)
  - Ill-defined disorder [Unknown]
  - Dry skin [Unknown]
  - Product use in unapproved indication [Unknown]
